FAERS Safety Report 4907315-9 (Version None)
Quarter: 2006Q1

REPORT INFORMATION
  Report Type: 
  Country: None (occurrence: None)
  Receive Date: 20060208
  Receipt Date: 20060208
  Transmission Date: 20060701
  Serious: Yes (Hospitalization)
  Sender: FDA-Public Use
  Company Number: None

PATIENT
  Age: 64 Year
  Sex: Male

DRUGS (10)
  1. IBUPROFEN [Suspect]
     Indication: PAIN
     Dosage: 600 MG TID
     Dates: start: 20051021
  2. LISINOPRIL [Suspect]
     Indication: HYPERTENSION
     Dosage: 10 MG QD
     Dates: start: 20051006
  3. HYDROCHLOROTHIAZIDE [Suspect]
     Indication: HYPERTENSION
     Dosage: 25MG QP
     Dates: start: 20051006
  4. AMITRIPTYLINE HCL [Concomitant]
  5. LORATADINE [Concomitant]
  6. NIACIN [Concomitant]
  7. NITROGLYCERIN [Concomitant]
  8. METOPROLOL [Concomitant]
  9. ZOCOR [Concomitant]
  10. PLAVIX [Concomitant]

REACTIONS (2)
  - NEPHRITIS INTERSTITIAL [None]
  - RENAL FAILURE ACUTE [None]
